FAERS Safety Report 12654640 (Version 1)
Quarter: 2016Q3

REPORT INFORMATION
  Report Type: Spontaneous
  Country: US (occurrence: US)
  Receive Date: 20160816
  Receipt Date: 20160816
  Transmission Date: 20161109
  Serious: No
  Sender: FDA-Public Use
  Company Number: US-BAYER-2016-158681

PATIENT
  Age: 70 Year
  Sex: Male
  Weight: 95.24 kg

DRUGS (4)
  1. ECOTRIN [Concomitant]
     Active Substance: ASPIRIN
  2. MIRALAX [Suspect]
     Active Substance: POLYETHYLENE GLYCOL 3350
     Indication: CONSTIPATION PROPHYLAXIS
     Dosage: 1 DF, QD
     Route: 048
     Dates: start: 2016
  3. KEPPRA [Concomitant]
     Active Substance: LEVETIRACETAM
  4. LYRICA [Concomitant]
     Active Substance: PREGABALIN

REACTIONS (1)
  - Product use issue [None]
